FAERS Safety Report 7783438-4 (Version None)
Quarter: 2011Q3

REPORT INFORMATION
  Report Type: 
  Country: None (occurrence: None)
  Receive Date: 20110928
  Receipt Date: 20110928
  Transmission Date: 20111222
  Serious: Yes (Life-Threatening, Disabling, Other)
  Sender: FDA-Public Use
  Company Number: None

PATIENT
  Sex: Male
  Weight: 56.699 kg

DRUGS (1)
  1. AMNESTEEM [Suspect]
     Indication: ACNE
     Dosage: 50MG
     Route: 048
     Dates: start: 20090710, end: 20091115

REACTIONS (6)
  - INSOMNIA [None]
  - DECREASED APPETITE [None]
  - WEIGHT DECREASED [None]
  - DEPRESSION [None]
  - ANHEDONIA [None]
  - SUICIDAL IDEATION [None]
